FAERS Safety Report 7675208-2 (Version None)
Quarter: 2011Q3

REPORT INFORMATION
  Report Type: 
  Country: None (occurrence: None)
  Receive Date: 20110810
  Receipt Date: 20110810
  Transmission Date: 20111222
  Serious: Yes (Life-Threatening)
  Sender: FDA-Public Use
  Company Number: None

PATIENT
  Age: 45 Year
  Sex: Female
  Weight: 70.306 kg

DRUGS (1)
  1. CALCITRIOL [Suspect]
     Indication: BLOOD CALCIUM DECREASED
     Dosage: 0.25 MCG
     Route: 048
     Dates: start: 20110729, end: 20110729

REACTIONS (11)
  - RASH [None]
  - CALCINOSIS [None]
  - VEIN DISORDER [None]
  - PALPITATIONS [None]
  - SKIN DISORDER [None]
  - SKIN DISCOLOURATION [None]
  - ANXIETY [None]
  - PAIN IN EXTREMITY [None]
  - NECK PAIN [None]
  - HEADACHE [None]
  - CHEST PAIN [None]
